FAERS Safety Report 18972459 (Version 1)
Quarter: 2021Q1

REPORT INFORMATION
  Report Type: Spontaneous
  Country: JP (occurrence: JP)
  Receive Date: 20210305
  Receipt Date: 20210305
  Transmission Date: 20210420
  Serious: Yes (Hospitalization, Other)
  Sender: FDA-Public Use
  Company Number: NVSJ2021JP003074

PATIENT
  Sex: Female

DRUGS (1)
  1. EQUMET [Suspect]
     Active Substance: METFORMIN HYDROCHLORIDE\VILDAGLIPTIN
     Indication: TYPE 2 DIABETES MELLITUS
     Dosage: 1DF: METFORMIN HYDROCHLORIDE UNK/VILDAGLIPTIN 50MG, UNK
     Route: 048

REACTIONS (2)
  - Angioedema [Recovered/Resolved]
  - Intestinal obstruction [Recovered/Resolved]
